FAERS Safety Report 9905396 (Version 1)
Quarter: 2013Q2

REPORT INFORMATION
  Report Type: Spontaneous
  Country: US (occurrence: None)
  Receive Date: 20130305
  Receipt Date: 20130305
  Transmission Date: 20140414
  Serious: Yes (Other)
  Sender: FDA-Public Use
  Company Number: 163-21880-12041612

PATIENT
  Age: 78 Year
  Sex: Male
  Weight: 85.73 kg

DRUGS (2)
  1. REVLIMID [Suspect]
     Indication: PLASMA CELL MYELOMA
     Dosage: 25 MG, DAILY FIR 21 DAYS, PO
     Route: 048
     Dates: start: 20100121
  2. ASPIRIN (ACETYLSALICYLIC ACID) (UNKNOWN) (ACETYLSALICYLIC ACID) [Concomitant]

REACTIONS (1)
  - Thrombosis [None]
